FAERS Safety Report 8007450-5 (Version None)
Quarter: 2011Q4

REPORT INFORMATION
  Report Type: 
  Country: None (occurrence: None)
  Receive Date: 20111227
  Receipt Date: 20111221
  Transmission Date: 20120403
  Serious: Yes (Other)
  Sender: FDA-Public Use
  Company Number: GB-PFIZER INC-2011032046

PATIENT
  Age: 38 Year
  Sex: Male

DRUGS (2)
  1. SERTRALINE HYDROCHLORIDE [Suspect]
     Indication: PRODUCT USED FOR UNKNOWN INDICATION
     Dosage: 300 MG, UNK
  2. SUMATRIPTAN SUCCINATE [Interacting]
     Dosage: UNK

REACTIONS (3)
  - APPENDICITIS [None]
  - DRUG INTERACTION [None]
  - OVERDOSE [None]
